FAERS Safety Report 20777675 (Version 1)
Quarter: 2022Q2

REPORT INFORMATION
  Report Type: Spontaneous
  Country: TW (occurrence: None)
  Receive Date: 20220503
  Receipt Date: 20220503
  Transmission Date: 20220721
  Serious: Yes (Hospitalization, Other)
  Sender: FDA-Public Use
  Company Number: TW-MICRO LABS LIMITED-ML2022-01783

PATIENT
  Age: 60 Year
  Sex: Male

DRUGS (12)
  1. GLIMEPIRIDE [Suspect]
     Active Substance: GLIMEPIRIDE
  2. AMLODIPINE [Suspect]
     Active Substance: AMLODIPINE BESYLATE
  3. ASPIRIN [Suspect]
     Active Substance: ASPIRIN
  4. CLOPIDOGREL [Suspect]
     Active Substance: CLOPIDOGREL BISULFATE
  5. VALSARTAN [Suspect]
     Active Substance: VALSARTAN
  6. PIOGLITAZONE [Suspect]
     Active Substance: PIOGLITAZONE
  7. CANAGLIFLOZIN [Suspect]
     Active Substance: CANAGLIFLOZIN
  8. BISOPROLOL [Suspect]
     Active Substance: BISOPROLOL
  9. ISOSORBIDE MONONITRATE [Suspect]
     Active Substance: ISOSORBIDE MONONITRATE
  10. SPIRONOLACTONE [Suspect]
     Active Substance: SPIRONOLACTONE
  11. HYDRALAZINE [Suspect]
     Active Substance: HYDRALAZINE HYDROCHLORIDE
  12. FUROSEMIDE [Suspect]
     Active Substance: FUROSEMIDE

REACTIONS (6)
  - Renal impairment [Recovered/Resolved]
  - Hydronephrosis [Recovered/Resolved]
  - Cardiac failure congestive [Recovered/Resolved]
  - Pneumothorax [Recovered/Resolved]
  - Pleural effusion [Recovered/Resolved]
  - Renal failure [Recovered/Resolved]
